FAERS Safety Report 17912246 (Version 1)
Quarter: 2020Q2

REPORT INFORMATION
  Report Type: Spontaneous
  Country: GB (occurrence: GB)
  Receive Date: 20200618
  Receipt Date: 20200618
  Transmission Date: 20200714
  Serious: Yes (Other)
  Sender: FDA-Public Use
  Company Number: GB-JNJFOC-20200618075

PATIENT
  Age: 61 Year
  Sex: Male

DRUGS (1)
  1. RIVAROXABAN [Suspect]
     Active Substance: RIVAROXABAN
     Indication: DEEP VEIN THROMBOSIS
     Dosage: FILM-COATED TABLET
     Route: 048
     Dates: end: 20200308

REACTIONS (5)
  - Gingival bleeding [Unknown]
  - Epistaxis [Unknown]
  - Acute kidney injury [Unknown]
  - Haemorrhage [Unknown]
  - Contraindicated product administered [Unknown]
